FAERS Safety Report 15665911 (Version 1)
Quarter: 2018Q4

REPORT INFORMATION
  Report Type: Spontaneous
  Country: US (occurrence: US)
  Receive Date: 20181116
  Receipt Date: 20181116
  Transmission Date: 20190205
  Serious: Yes (Hospitalization)
  Sender: FDA-Public Use
  Company Number: None

PATIENT
  Age: 60 Year
  Sex: Male
  Weight: 105.2 kg

DRUGS (9)
  1. LACTOBACILLUS [Concomitant]
     Active Substance: LACTOBACILLUS ACIDOPHILUS
  2. METOPROLOL. [Concomitant]
     Active Substance: METOPROLOL
  3. ENULOSE [Concomitant]
     Active Substance: LACTULOSE
  4. FLUOXETINE [Concomitant]
     Active Substance: FLUOXETINE HYDROCHLORIDE
  5. GABAPENTIN. [Concomitant]
     Active Substance: GABAPENTIN
  6. MILK OF MAGNESIA [Concomitant]
     Active Substance: MAGNESIUM HYDROXIDE
  7. FAMOTIDINE. [Concomitant]
     Active Substance: FAMOTIDINE
  8. IMBRUVICA [Suspect]
     Active Substance: IBRUTINIB
     Indication: CHRONIC LYMPHOCYTIC LEUKAEMIA
     Dosage: ?          QUANTITY:28 DF DOSAGE FORM;?
     Route: 048
     Dates: start: 2016, end: 20181114
  9. PEPCID [Concomitant]
     Active Substance: FAMOTIDINE

REACTIONS (7)
  - Therapy cessation [None]
  - Loss of consciousness [None]
  - Dizziness [None]
  - Fatigue [None]
  - Dyspnoea [None]
  - Atrial fibrillation [None]
  - Palpitations [None]

NARRATIVE: CASE EVENT DATE: 20181115
